FAERS Safety Report 23957265 (Version 1)
Quarter: 2024Q2

REPORT INFORMATION
  Report Type: Spontaneous
  Country: US (occurrence: US)
  Receive Date: 20240610
  Receipt Date: 20240610
  Transmission Date: 20240716
  Serious: Yes (Hospitalization)
  Sender: FDA-Public Use
  Company Number: US-ELI_LILLY_AND_COMPANY-US202405017930

PATIENT
  Age: 84 Year
  Sex: Female

DRUGS (5)
  1. INSULIN HUMAN [Suspect]
     Active Substance: INSULIN HUMAN
     Indication: Type 1 diabetes mellitus
     Dosage: 12 DOSAGE FORM, OTHER
     Route: 042
  2. INSULIN HUMAN [Suspect]
     Active Substance: INSULIN HUMAN
     Dosage: 10 DOSAGE FORM, OTHER
     Route: 058
  3. INSULIN HUMAN [Suspect]
     Active Substance: INSULIN HUMAN
     Dosage: 2 DOSAGE FORM, HOUR
     Route: 065
  4. INSULIN HUMAN [Suspect]
     Active Substance: INSULIN HUMAN
     Dosage: 54 DOSAGE FORM, DAILY
     Route: 065
  5. INSULIN HUMAN [Suspect]
     Active Substance: INSULIN HUMAN
     Dosage: 50 DOSAGE FORM, DAILY
     Route: 065

REACTIONS (6)
  - Pneumonia [Unknown]
  - Diabetic ketoacidosis [Unknown]
  - Hyperglycaemia [Unknown]
  - Hyperglycaemia [Unknown]
  - Weight increased [Unknown]
  - Hypoglycaemia [Unknown]
